FAERS Safety Report 4381697-1 (Version None)
Quarter: 2004Q2

REPORT INFORMATION
  Report Type: 
  Country: None (occurrence: None)
  Receive Date: 20040615
  Receipt Date: 20040603
  Transmission Date: 20050107
  Serious: Yes (Death, Hospitalization, Other)
  Sender: FDA-Public Use
  Company Number: 2004217544GR

PATIENT
  Age: 57 Year
  Sex: Male

DRUGS (3)
  1. ZYVOXID( (LINEZOLID)SOLUTION, STERILE [Suspect]
     Indication: INFECTION
     Dosage: 600 MG, BID, IV
     Route: 042
  2. ZYVOXID (LINEZOLID)TABLET [Suspect]
     Indication: INFECTION
     Dosage: ORAL
     Route: 048
  3. ZYVOXID (LINEZOLID)SOLUTION, STERILE [Suspect]
     Indication: ENTEROCOCCAL INFECTION
     Dosage: 600 MG, BID, IV
     Route: 042

REACTIONS (4)
  - ANAEMIA [None]
  - ENTEROCOCCAL INFECTION [None]
  - PERITONITIS [None]
  - THROMBOCYTOPENIA [None]
